FAERS Safety Report 11934211 (Version 1)
Quarter: 2016Q1

REPORT INFORMATION
  Report Type: Spontaneous
  Country: US (occurrence: None)
  Receive Date: 20160120
  Receipt Date: 20160120
  Transmission Date: 20160526
  Serious: No
  Sender: FDA-Public Use
  Company Number: None

PATIENT
  Age: 59 Year
  Sex: Female
  Weight: 83.92 kg

DRUGS (6)
  1. FINASTERIDE 5MG [Suspect]
     Active Substance: FINASTERIDE
     Indication: ANDROGENETIC ALOPECIA
     Route: 048
     Dates: start: 20160114, end: 20160118
  2. SYNTHROID [Concomitant]
     Active Substance: LEVOTHYROXINE SODIUM
  3. MEGA RED KRILL OIL [Concomitant]
  4. VITAMINDP D3 [Concomitant]
  5. BIOTIN [Concomitant]
     Active Substance: BIOTIN
  6. MVI GUMMIES [Concomitant]

REACTIONS (5)
  - Agitation [None]
  - Nervousness [None]
  - Anxiety [None]
  - Chest discomfort [None]
  - Insomnia [None]

NARRATIVE: CASE EVENT DATE: 20160118
